FAERS Safety Report 5483364-X (Version None)
Quarter: 2007Q4

REPORT INFORMATION
  Report Type: 
  Country: None (occurrence: None)
  Receive Date: 20071012
  Receipt Date: 20071002
  Transmission Date: 20080405
  Serious: Yes (Hospitalization)
  Sender: FDA-Public Use
  Company Number: US-JNJFOC-20071001063

PATIENT
  Sex: Female
  Weight: 57.15 kg

DRUGS (6)
  1. DURAGESIC-100 [Suspect]
     Indication: PAIN
     Route: 062
  2. ALTOPREV [Concomitant]
     Indication: BLOOD CHOLESTEROL
     Route: 048
  3. CLARITIN [Concomitant]
     Indication: MULTIPLE ALLERGIES
     Route: 048
  4. RISPERDAL [Concomitant]
     Indication: NERVOUSNESS
     Route: 048
  5. SOMA [Concomitant]
     Indication: MUSCLE SPASMS
     Route: 048
  6. REGLAN [Concomitant]
     Indication: GASTRIC DISORDER
     Dosage: WITH MEALS
     Route: 048

REACTIONS (7)
  - BLOOD URINE PRESENT [None]
  - CONSTIPATION [None]
  - HOT FLUSH [None]
  - HYPERHIDROSIS [None]
  - INAPPROPRIATE SCHEDULE OF DRUG ADMINISTRATION [None]
  - NEOPLASM MALIGNANT [None]
  - OSTEOPOROSIS [None]
